FAERS Safety Report 8474966-7 (Version None)
Quarter: 2012Q2

REPORT INFORMATION
  Report Type: 
  Country: None (occurrence: None)
  Receive Date: 20120628
  Receipt Date: 20120626
  Transmission Date: 20120825
  Serious: Yes (Death, Hospitalization)
  Sender: FDA-Public Use
  Company Number: PHHY2011CA95735

PATIENT
  Sex: Male

DRUGS (2)
  1. SUTENT [Concomitant]
  2. ZOMETA [Suspect]
     Indication: METASTATIC RENAL CELL CARCINOMA
     Dosage: 4 MG, EVERY 4 WEEKS
     Route: 042
     Dates: start: 20110718

REACTIONS (6)
  - DEATH [None]
  - PNEUMONIA [None]
  - URINARY TRACT INFECTION [None]
  - INFECTION [None]
  - SOMNOLENCE [None]
  - MALAISE [None]
